FAERS Safety Report 12156098 (Version 2)
Quarter: 2017Q1

REPORT INFORMATION
  Report Type: Spontaneous
  Country: US (occurrence: US)
  Receive Date: 20160307
  Receipt Date: 20170118
  Transmission Date: 20170428
  Serious: Yes (Other)
  Sender: FDA-Public Use
  Company Number: US-ELI_LILLY_AND_COMPANY-US201602009333

PATIENT
  Sex: Female

DRUGS (3)
  1. CYMBALTA [Suspect]
     Active Substance: DULOXETINE HYDROCHLORIDE
     Indication: NEURALGIA
     Dosage: 60 MG, QD
     Route: 048
     Dates: start: 200711
  2. CYMBALTA [Suspect]
     Active Substance: DULOXETINE HYDROCHLORIDE
     Dosage: 60 MG, QD
     Route: 048
  3. CYMBALTA [Suspect]
     Active Substance: DULOXETINE HYDROCHLORIDE
     Indication: DEPRESSION
     Dosage: 30 MG, TAKE ONE QD WITH 60 MG
     Route: 048
     Dates: start: 200808

REACTIONS (15)
  - Nausea [Unknown]
  - Agitation [Unknown]
  - Vertigo [Unknown]
  - Disturbance in attention [Unknown]
  - Confusional state [Unknown]
  - Withdrawal syndrome [Unknown]
  - Dizziness [Unknown]
  - Depression [Unknown]
  - Paraesthesia [Unknown]
  - Vomiting [Unknown]
  - Memory impairment [Unknown]
  - Fall [Unknown]
  - Suicidal ideation [Unknown]
  - Hyperhidrosis [Unknown]
  - Dysphoria [Unknown]
